FAERS Safety Report 15480560 (Version 4)
Quarter: 2018Q4

REPORT INFORMATION
  Report Type: Spontaneous
  Country: US (occurrence: US)
  Receive Date: 20181010
  Receipt Date: 20181116
  Transmission Date: 20190205
  Serious: Yes (Other)
  Sender: FDA-Public Use
  Company Number: US-AMGEN-USASP2018139440

PATIENT
  Age: 71 Year
  Sex: Male
  Weight: 77.4 kg

DRUGS (2)
  1. VECTIBIX [Suspect]
     Active Substance: PANITUMUMAB
     Dosage: 434 MG, Q2WK (6MG/KG)
     Route: 042
     Dates: start: 20180921
  2. VECTIBIX [Suspect]
     Active Substance: PANITUMUMAB
     Indication: COLORECTAL CANCER METASTATIC
     Dosage: 434 MG, Q2WK (6MG/KG)
     Route: 042
     Dates: start: 20180615, end: 20180907

REACTIONS (2)
  - Nail bed infection [Recovered/Resolved]
  - Rash [Recovered/Resolved]

NARRATIVE: CASE EVENT DATE: 201808
